FAERS Safety Report 24170797 (Version 1)
Quarter: 2024Q3

REPORT INFORMATION
  Report Type: Spontaneous
  Country: CN (occurrence: CN)
  Receive Date: 20240805
  Receipt Date: 20240805
  Transmission Date: 20241016
  Serious: Yes (Hospitalization)
  Sender: PFIZER
  Company Number: CN-PFIZER INC-PV202400100053

PATIENT
  Age: 7 Year
  Sex: Male
  Weight: 23.7 kg

DRUGS (5)
  1. METHOTREXATE SODIUM [Suspect]
     Active Substance: METHOTREXATE SODIUM
     Indication: Neoplasm malignant
     Dosage: 4787.5 MG, 1X/DAY
     Route: 041
     Dates: start: 20240707, end: 20240707
  2. CYCLOPHOSPHAMIDE [Suspect]
     Active Substance: CYCLOPHOSPHAMIDE
     Indication: Neoplasm malignant
     Dosage: 191.5 MG, 1X/DAY
     Route: 041
     Dates: start: 20240707, end: 20240711
  3. PIRARUBICIN HYDROCHLORIDE [Suspect]
     Active Substance: PIRARUBICIN HYDROCHLORIDE
     Indication: Neoplasm malignant
     Dosage: 23.938 MG, 1X/DAY
     Route: 041
     Dates: start: 20240710, end: 20240711
  4. VINCRISTINE SULFATE [Suspect]
     Active Substance: VINCRISTINE SULFATE
     Indication: Neoplasm malignant
     Dosage: 1.436 MG, 1X/DAY
     Route: 041
     Dates: start: 20240707, end: 20240707
  5. DEXAMETHASONE [Concomitant]
     Active Substance: DEXAMETHASONE
     Indication: Chemotherapy
     Dosage: UNK

REACTIONS (7)
  - Myelosuppression [Recovering/Resolving]
  - Sepsis [Unknown]
  - Granulocyte count decreased [Unknown]
  - Platelet count decreased [Unknown]
  - Mouth ulceration [Unknown]
  - Anaemia [Unknown]
  - Burkitt^s lymphoma stage III [Unknown]

NARRATIVE: CASE EVENT DATE: 20240717
